FAERS Safety Report 8049786-8 (Version None)
Quarter: 2012Q1

REPORT INFORMATION
  Report Type: 
  Country: None (occurrence: None)
  Receive Date: 20120117
  Receipt Date: 20120109
  Transmission Date: 20120608
  Serious: Yes (Hospitalization)
  Sender: FDA-Public Use
  Company Number: GB-B.I. PHARMACEUTICALS,INC./RIDGEFIELD-2011-UK-01382UK

PATIENT
  Sex: Female

DRUGS (10)
  1. FLUPENTIXOL [Concomitant]
     Dosage: 500 MCG
     Route: 048
  2. PRADAXA [Suspect]
     Dates: end: 20111117
  3. BISOPROLOL FUMARATE [Concomitant]
     Indication: ATRIAL FIBRILLATION
     Dosage: 5 MG
     Route: 048
  4. GALANTAMINE HYDROBROMIDE [Concomitant]
     Dosage: 24 MG
     Route: 048
  5. DIGOXIN [Concomitant]
     Indication: ATRIAL FIBRILLATION
     Dosage: 125 MCG
     Route: 048
  6. PRADAXA [Suspect]
     Indication: CEREBROVASCULAR ACCIDENT PROPHYLAXIS
     Dosage: 220 MG
     Route: 048
     Dates: start: 20111117
  7. PRADAXA [Suspect]
     Indication: ATRIAL FIBRILLATION
     Dosage: 300 MG
     Route: 048
     Dates: start: 20111206
  8. MIRTAZAPINE [Concomitant]
     Dosage: 15 MG
     Route: 048
  9. SIMVASTATIN [Concomitant]
     Indication: HYPERCHOLESTEROLAEMIA
     Dosage: 20 MG
     Route: 048
  10. PREGABALIN [Concomitant]
     Dosage: 25 MG
     Route: 048

REACTIONS (6)
  - VIITH NERVE PARALYSIS [None]
  - BALANCE DISORDER [None]
  - CEREBRAL INFARCTION [None]
  - DRUG INEFFECTIVE [None]
  - FALL [None]
  - URINARY TRACT INFECTION [None]
